FAERS Safety Report 18470719 (Version 1)
Quarter: 2020Q4

REPORT INFORMATION
  Report Type: Spontaneous
  Country: BR (occurrence: BR)
  Receive Date: 20201106
  Receipt Date: 20201106
  Transmission Date: 20210114
  Serious: Yes (Other)
  Sender: FDA-Public Use
  Company Number: BR-ROCHE-2707451

PATIENT
  Age: 85 Year
  Sex: Male

DRUGS (1)
  1. RANIBIZUMAB. [Suspect]
     Active Substance: RANIBIZUMAB
     Indication: MACULAR DEGENERATION
     Dosage: UNK UNK, QMO
     Route: 031

REACTIONS (8)
  - Subretinal fluid [Unknown]
  - Retinal neovascularisation [Unknown]
  - Cystoid macular oedema [Unknown]
  - Visual impairment [Unknown]
  - Retinal disorder [Unknown]
  - Retinal haemorrhage [Unknown]
  - Cataract [Unknown]
  - Detachment of retinal pigment epithelium [Unknown]
